FAERS Safety Report 18638096 (Version 2)
Quarter: 2025Q1

REPORT INFORMATION
  Report Type: Report from Study
  Country: US (occurrence: US)
  Receive Date: 20201218
  Receipt Date: 20250116
  Transmission Date: 20250408
  Serious: Yes (Hospitalization, Other)
  Sender: TAKEDA
  Company Number: US-TAKEDA-2020TUS058108

PATIENT
  Sex: Female
  Weight: 90 kg

DRUGS (16)
  1. HUMAN IMMUNOGLOBULIN G [Suspect]
     Active Substance: HUMAN IMMUNOGLOBULIN G
     Indication: Immunodeficiency common variable
     Dosage: 30 GRAM, Q4WEEKS
     Dates: start: 20180629
  2. HUMAN IMMUNOGLOBULIN G [Suspect]
     Active Substance: HUMAN IMMUNOGLOBULIN G
     Dosage: 30 GRAM, Q4WEEKS
  3. CLINDAMYCIN [Concomitant]
     Active Substance: CLINDAMYCIN
  4. AMBIEN [Concomitant]
     Active Substance: ZOLPIDEM TARTRATE
  5. IBUPROFEN [Concomitant]
     Active Substance: IBUPROFEN
  6. LORAZEPAM [Concomitant]
     Active Substance: LORAZEPAM
  7. ESTRACE [Concomitant]
     Active Substance: ESTRADIOL
  8. MICARDIS [Concomitant]
     Active Substance: TELMISARTAN
  9. GARLIC [Concomitant]
     Active Substance: GARLIC
  10. ACETAMINOPHEN\HYDROCODONE [Concomitant]
     Active Substance: ACETAMINOPHEN\HYDROCODONE
  11. VITAMIN D3 [Concomitant]
     Active Substance: CHOLECALCIFEROL
  12. VITAMIN B12 [Concomitant]
     Active Substance: CYANOCOBALAMIN
  13. PRILOSEC [Concomitant]
     Active Substance: OMEPRAZOLE MAGNESIUM
  14. COCONUT OIL [Concomitant]
     Active Substance: COCONUT OIL
  15. CLINDAMYCIN HYDROCHLORIDE [Concomitant]
     Active Substance: CLINDAMYCIN HYDROCHLORIDE
  16. VITAMIN B [Concomitant]
     Active Substance: VITAMIN B

REACTIONS (8)
  - Diverticulitis [Unknown]
  - Depression [Unknown]
  - COVID-19 [Unknown]
  - Illness [Unknown]
  - Glucose tolerance impaired [Unknown]
  - Hypoaesthesia [Unknown]
  - Asthenia [Unknown]
  - Pain [Unknown]
